FAERS Safety Report 19769820 (Version 2)
Quarter: 2021Q4

REPORT INFORMATION
  Report Type: Spontaneous
  Country: US (occurrence: US)
  Receive Date: 20210831
  Receipt Date: 20211005
  Transmission Date: 20220303
  Serious: No
  Sender: FDA-Public Use
  Company Number: 2021A680904

PATIENT
  Age: 910 Month
  Sex: Male
  Weight: 87.5 kg

DRUGS (1)
  1. SYMBICORT [Suspect]
     Active Substance: BUDESONIDE\FORMOTEROL FUMARATE DIHYDRATE
     Indication: Maximal voluntary ventilation
     Dosage: 80/4.5MCG, 2 PUFFS, DAILY
     Route: 055

REACTIONS (10)
  - COVID-19 [Unknown]
  - Nasal disorder [Unknown]
  - Dyspnoea [Unknown]
  - Intervertebral disc protrusion [Unknown]
  - Hypopnoea [Unknown]
  - Musculoskeletal discomfort [Unknown]
  - Product use issue [Unknown]
  - Chronic obstructive pulmonary disease [Unknown]
  - Device defective [Unknown]
  - Cough [Unknown]

NARRATIVE: CASE EVENT DATE: 20201201
